FAERS Safety Report 7021940-3 (Version None)
Quarter: 2010Q3

REPORT INFORMATION
  Report Type: 
  Country: None (occurrence: None)
  Receive Date: 20100930
  Receipt Date: 20100924
  Transmission Date: 20110219
  Serious: Yes (Other)
  Sender: FDA-Public Use
  Company Number: BR-BAYER-201019310LA

PATIENT
  Sex: Female
  Weight: 84 kg

DRUGS (3)
  1. YAZ [Suspect]
     Indication: ORAL CONTRACEPTION
     Route: 048
     Dates: start: 20100801, end: 20100917
  2. AZITROMICINA [Concomitant]
     Indication: PHARYNGITIS
     Route: 048
     Dates: start: 20100918
  3. CORTICOIDE [Concomitant]
     Indication: PHARYNGITIS
     Route: 048
     Dates: start: 20100918

REACTIONS (3)
  - ABNORMAL WITHDRAWAL BLEEDING [None]
  - PREGNANCY ON ORAL CONTRACEPTIVE [None]
  - SUICIDAL IDEATION [None]
